FAERS Safety Report 6869716-1 (Version None)
Quarter: 2010Q3

REPORT INFORMATION
  Report Type: 
  Country: None (occurrence: None)
  Receive Date: 20100722
  Receipt Date: 20080819
  Transmission Date: 20110219
  Serious: Yes (Other)
  Sender: FDA-Public Use
  Company Number: US-PFIZER INC-2008070036

PATIENT
  Sex: Female
  Weight: 77.1 kg

DRUGS (4)
  1. CHANTIX [Suspect]
     Indication: SMOKING CESSATION THERAPY
     Dates: start: 20080809
  2. ANTIHYPERTENSIVES [Concomitant]
     Indication: BLOOD PRESSURE
  3. DIURETICS [Concomitant]
  4. GLUCOSAMINE [Concomitant]

REACTIONS (4)
  - BLINDNESS [None]
  - ERUCTATION [None]
  - MALAISE [None]
  - NAUSEA [None]
